FAERS Safety Report 9931935 (Version 1)
Quarter: 2014Q1

REPORT INFORMATION
  Report Type: Spontaneous
  Country: IT (occurrence: IT)
  Receive Date: 20140228
  Receipt Date: 20140228
  Transmission Date: 20141002
  Serious: Yes (Life-Threatening, Hospitalization, Other)
  Sender: FDA-Public Use
  Company Number: IT-ROXANE LABORATORIES, INC.-2014-RO-00264RO

PATIENT
  Age: 43 Year
  Sex: Female

DRUGS (2)
  1. METHADONE [Suspect]
     Indication: PRODUCT USED FOR UNKNOWN INDICATION
     Route: 048
  2. DIAZEPAM [Suspect]
     Indication: PRODUCT USED FOR UNKNOWN INDICATION
     Route: 048

REACTIONS (5)
  - Suicide attempt [Unknown]
  - Intentional overdose [Recovered/Resolved]
  - Leukoencephalopathy [Recovered/Resolved]
  - Pneumonia aspiration [Recovered/Resolved]
  - Blood potassium increased [Recovered/Resolved]
